FAERS Safety Report 7576028-X (Version None)
Quarter: 2011Q2

REPORT INFORMATION
  Report Type: 
  Country: None (occurrence: None)
  Receive Date: 20110628
  Receipt Date: 20110606
  Transmission Date: 20111010
  Serious: Yes (Hospitalization, Other)
  Sender: FDA-Public Use
  Company Number: US-BAYER-201042070NA

PATIENT
  Age: 28 Year
  Sex: Female
  Weight: 76.19 kg

DRUGS (8)
  1. HYDROCODONE BITARTRATE AND ACETAMINOPHEN [Concomitant]
     Dosage: UNK
  2. YAZ [Suspect]
     Indication: MENSTRUAL DISORDER
     Route: 048
     Dates: start: 20080215, end: 20081116
  3. KLONOPIN [Concomitant]
  4. METRONIDAZOLE [Concomitant]
  5. ACYCLOVIR [Concomitant]
     Dosage: 800 MG, UNK
  6. PROAIR HFA [Concomitant]
  7. ST. JOHN'S WORT [Concomitant]
  8. EFFEXOR XR [Concomitant]
     Dosage: 75 MG, UNK

REACTIONS (2)
  - PULMONARY EMBOLISM [None]
  - DEEP VEIN THROMBOSIS [None]
